FAERS Safety Report 12818221 (Version 2)
Quarter: 2016Q4

REPORT INFORMATION
  Report Type: Spontaneous
  Country: US (occurrence: US)
  Receive Date: 20161006
  Receipt Date: 20161129
  Transmission Date: 20170207
  Serious: No
  Sender: FDA-Public Use
  Company Number: US-PFIZER INC-2016376059

PATIENT
  Age: 61 Year
  Sex: Male
  Weight: 92.99 kg

DRUGS (5)
  1. OMEPRAZOLE. [Concomitant]
     Active Substance: OMEPRAZOLE
     Indication: ANTACID THERAPY
     Dosage: 40 MG, 2X/DAY
     Route: 048
  2. LYRICA [Suspect]
     Active Substance: PREGABALIN
     Dosage: 200 MG, 3X/DAY
     Route: 048
     Dates: start: 201511
  3. HYDROCODONE/ACETAMINOPHEN [Concomitant]
     Active Substance: ACETAMINOPHEN\HYDROCODONE
     Indication: PAIN
     Dosage: UNK UNK, AS NEEDED (HYDROCODONE 10 MG/ACETAMINOPHEN 325MG, ONE TAB QID PRN)
     Route: 048
     Dates: start: 20150630
  4. TIZANIDINE HCL [Concomitant]
     Active Substance: TIZANIDINE HYDROCHLORIDE
     Indication: MUSCLE SPASMS
     Dosage: 4 MG, AS NEEDED (1 PO QID PRN )
     Route: 048
     Dates: start: 20151005
  5. LYRICA [Suspect]
     Active Substance: PREGABALIN
     Indication: NEURALGIA
     Dosage: 200 MG, 3X/DAY
     Route: 048
     Dates: start: 20151001

REACTIONS (1)
  - Back disorder [Unknown]
